FAERS Safety Report 6520350-2 (Version None)
Quarter: 2009Q4

REPORT INFORMATION
  Report Type: 
  Country: None (occurrence: None)
  Receive Date: 20091229
  Receipt Date: 20091214
  Transmission Date: 20100525
  Serious: Yes (Death, Hospitalization, Other)
  Sender: FDA-Public Use
  Company Number: FR-PFIZER INC-2009311010

PATIENT
  Sex: Male

DRUGS (1)
  1. TAHOR [Suspect]
     Dosage: 80 MG, UNK

REACTIONS (3)
  - CEREBROVASCULAR DISORDER [None]
  - DEATH [None]
  - RHABDOMYOLYSIS [None]
